FAERS Safety Report 5955057-3 (Version None)
Quarter: 2008Q4

REPORT INFORMATION
  Report Type: 
  Country: None (occurrence: None)
  Receive Date: 20081117
  Receipt Date: 20081103
  Transmission Date: 20090506
  Serious: Yes (Life-Threatening)
  Sender: FDA-Public Use
  Company Number: B0544669A

PATIENT
  Age: 23 Year
  Sex: Female

DRUGS (1)
  1. AUGMENTIN '125' [Suspect]
     Indication: DRUG USE FOR UNKNOWN INDICATION
     Route: 042
     Dates: start: 20080728, end: 20080728

REACTIONS (7)
  - ANAPHYLACTIC REACTION [None]
  - DIARRHOEA [None]
  - HYPOTENSION [None]
  - LARYNGEAL OEDEMA [None]
  - OXYGEN SATURATION DECREASED [None]
  - TACHYCARDIA [None]
  - VOMITING [None]
